FAERS Safety Report 8971357 (Version 6)
Quarter: 2013Q2

REPORT INFORMATION
  Report Type: Report from Study
  Country: CZ (occurrence: CZ)
  Receive Date: 20121218
  Receipt Date: 20130506
  Transmission Date: 20140414
  Serious: Yes (Hospitalization)
  Sender: FDA-Public Use
  Company Number: CZ-BAYER-2012-111228

PATIENT
  Age: 63 Year
  Sex: Male
  Weight: 83 kg

DRUGS (32)
  1. REGORAFENIB [Suspect]
     Indication: COLORECTAL CANCER METASTATIC
     Dosage: 160 MG, QD
     Route: 048
     Dates: start: 20121012, end: 20121018
  2. EUCREAS [Concomitant]
     Indication: DIABETES MELLITUS
     Dosage: 50 MG, QD
     Route: 048
     Dates: start: 201201, end: 20121016
  3. PROPANORM [Concomitant]
     Indication: ATRIAL FIBRILLATION
     Dosage: 300 MG, BID
     Route: 048
     Dates: start: 201105
  4. DIGOXIN [Concomitant]
     Indication: MYOCARDIAL ISCHAEMIA
     Dosage: 0.125 MG, QD
     Route: 048
     Dates: start: 2000, end: 20121021
  5. DIGOXIN [Concomitant]
     Indication: MYOCARDIAL ISCHAEMIA
     Dosage: 0.250 MG, QD
     Route: 048
     Dates: start: 20121022
  6. GLIMEPIRIDE [Concomitant]
     Indication: DIABETES MELLITUS
     Dosage: 4 MG, QD
     Route: 048
     Dates: start: 201201, end: 20121018
  7. BETALOC ZOK [Concomitant]
     Indication: MYOCARDIAL ISCHAEMIA
     Dosage: 25 MG, QD
     Route: 048
     Dates: start: 201203, end: 20121018
  8. BETALOC ZOK [Concomitant]
     Indication: MYOCARDIAL ISCHAEMIA
     Dosage: 25 MG, QD
     Route: 048
     Dates: start: 20121022
  9. CLOPIDOGREL [Concomitant]
     Indication: MYOCARDIAL ISCHAEMIA
     Dosage: 75 MG, QD
     Route: 048
     Dates: start: 201204, end: 20121018
  10. MAGNESII LACTICI [Concomitant]
     Indication: PROPHYLAXIS
     Dosage: 25 MG, QD
     Route: 048
     Dates: start: 201210, end: 20121016
  11. CARDILAN [Concomitant]
     Indication: MYOCARDIAL ISCHAEMIA
     Dosage: 250 MG, QD
     Route: 048
     Dates: start: 201210
  12. CARDILAN [Concomitant]
     Indication: MYOCARDIAL ISCHAEMIA
     Dosage: 350 MG, QD
     Route: 048
     Dates: start: 20121027
  13. PRENESSA [Concomitant]
     Indication: MYOCARDIAL ISCHAEMIA
     Dosage: 4 MG, QD
     Route: 048
     Dates: start: 201210, end: 20121018
  14. ASCORUTIN [Concomitant]
     Indication: THROMBOCYTOPENIA
     Dosage: 120 MG, QD
     Route: 048
     Dates: start: 201210
  15. IOMERON [Concomitant]
     Indication: COMPUTERISED TOMOGRAM
     Dosage: 100 ML, ONCE
     Route: 042
     Dates: start: 20121005, end: 20121005
  16. BETALOC [Concomitant]
     Indication: MYOCARDIAL ISCHAEMIA
     Dosage: 20MG/50ML SALINE SOLUTION
     Route: 041
     Dates: start: 20121019, end: 20121021
  17. FRAXIPARIN [Concomitant]
     Indication: THROMBOSIS PROPHYLAXIS
     Dosage: 0.4 ML, BID
     Route: 058
     Dates: start: 20121019, end: 20121021
  18. FRAXIPARIN [Concomitant]
     Indication: THROMBOSIS PROPHYLAXIS
     Dosage: 0.5 ML, BID
     Route: 058
     Dates: start: 20121022, end: 20121028
  19. HELICID [Concomitant]
     Indication: PROPHYLAXIS AGAINST GASTROINTESTINAL ULCER
     Dosage: 40 MG/100 ML SALINE SOLUTION
     Route: 041
     Dates: start: 20121019, end: 20121021
  20. ORTANOL [Concomitant]
     Indication: PROPHYLAXIS AGAINST GASTROINTESTINAL ULCER
     Dosage: 20 MG, QD
     Route: 048
     Dates: start: 20121022
  21. DITHIADEN [Concomitant]
     Indication: PROPHYLAXIS
     Dosage: 1 MG, QD (DITHIADEN 5% GLUCOSE SOLUTION)
     Dates: start: 20121019, end: 20121028
  22. DITHIADEN [Concomitant]
     Indication: PROPHYLAXIS
     Dosage: 2 MG, QD
     Dates: start: 20121027
  23. PLASMALYTE [GLUCOSE,POTASSIUM CHLORIDE] [Concomitant]
     Indication: INFUSION
     Dosage: 2000 ML/7.5 % KCL 40 ML, CONTINUING INFUSION
     Route: 041
     Dates: start: 20121019, end: 20121020
  24. POTASSIUM CHLORIDE W/SODIUM CHLORIDE [Concomitant]
     Indication: INFUSION
     Dosage: 2000 ML/7.5 % KCL 40 ML, CONTINUING INFUSION
     Dates: start: 20121020, end: 20121022
  25. SALINE [SODIUM CHLORIDE] [Concomitant]
     Indication: INFUSION
     Dosage: 1000 ML, QD
     Route: 041
     Dates: start: 20121022, end: 20121025
  26. GALENIC /POTASSIUM CHLORIDE/GLUCOSE/ [Concomitant]
     Indication: INFUSION
     Dosage: 500 ML/KCL 40 ML/14JHMR, BID
     Route: 041
     Dates: start: 20121019, end: 20121020
  27. CARDILAN [Concomitant]
     Indication: INFUSION
     Dosage: 500 ML/HMR 8J/100 MG
     Route: 041
     Dates: start: 20121020, end: 20121020
  28. GLUCOSE W/SODIUM CHLORIDE [Concomitant]
     Indication: INFUSION
     Dosage: 500 ML/HMR 12J, QD
     Route: 041
     Dates: start: 20121021, end: 20121022
  29. ELECTROLYTE SOLUTIONS [Concomitant]
     Indication: INFUSION
     Dosage: 1000 ML, CONTINUAL INFUSION
     Route: 041
     Dates: start: 20121020, end: 20121021
  30. LACTULOSA [Concomitant]
     Indication: CONSTIPATION PROPHYLAXIS
     Dosage: 10 ML, BID
     Route: 048
     Dates: start: 20121021
  31. ANOPYRIN [Concomitant]
     Indication: THROMBOSIS PROPHYLAXIS
     Dosage: 100 MG, QD
     Route: 048
     Dates: start: 20121027
  32. ZODAC [Concomitant]
     Indication: ALLERGY PROPHYLAXIS
     Dosage: 10 MG, QD
     Route: 048
     Dates: start: 20121027

REACTIONS (16)
  - Sepsis [Recovered/Resolved]
  - Abdominal pain [Recovered/Resolved]
  - Stomatitis [Recovered/Resolved]
  - Vomiting [Recovered/Resolved]
  - Asthenia [Recovered/Resolved]
  - Leukocytosis [Recovered/Resolved]
  - Hyperuricaemia [Recovered/Resolved]
  - Aspartate aminotransferase increased [Recovered/Resolved]
  - Palpitations [Recovered/Resolved]
  - Tachycardia [Recovered/Resolved]
  - Atrial flutter [Recovered/Resolved]
  - Hyperbilirubinaemia [Recovered/Resolved]
  - Pyrexia [Recovered/Resolved]
  - Chills [Recovered/Resolved]
  - Hyperglycaemia [Recovered/Resolved]
  - Dermatitis allergic [Recovered/Resolved]
